FAERS Safety Report 17942194 (Version 1)
Quarter: 2020Q2

REPORT INFORMATION
  Report Type: Spontaneous
  Country: US (occurrence: US)
  Receive Date: 20200624
  Receipt Date: 20200624
  Transmission Date: 20200714
  Serious: Yes (Hospitalization)
  Sender: FDA-Public Use
  Company Number: None

PATIENT
  Age: 52 Year
  Sex: Female

DRUGS (5)
  1. LIDOCAINE. [Concomitant]
     Active Substance: LIDOCAINE
  2. NAPROXEN. [Concomitant]
     Active Substance: NAPROXEN
  3. METHYLPHENIDATE. [Concomitant]
     Active Substance: METHYLPHENIDATE
  4. XANAX [Concomitant]
     Active Substance: ALPRAZOLAM
  5. XOLAIR [Suspect]
     Active Substance: OMALIZUMAB
     Indication: IDIOPATHIC URTICARIA
     Route: 058
     Dates: start: 20180731

REACTIONS (7)
  - Cerebral haemorrhage [None]
  - Urticaria [None]
  - Anxiety [None]
  - Seizure [None]
  - Eye disorder [None]
  - Blood pressure abnormal [None]
  - Nightmare [None]

NARRATIVE: CASE EVENT DATE: 20200624
